FAERS Safety Report 4516249-3 (Version None)
Quarter: 2004Q4

REPORT INFORMATION
  Report Type: 
  Country: None (occurrence: None)
  Receive Date: 20041129
  Receipt Date: 20041122
  Transmission Date: 20050328
  Serious: Yes (Other)
  Sender: FDA-Public Use
  Company Number: US-JNJFOC-20041105670

PATIENT
  Sex: Male

DRUGS (9)
  1. IMODIUM A-D [Suspect]
     Indication: DIARRHOEA
     Dosage: ^UP TO 18 CAPLETS PER DAY PRN AT THE MOST^
     Dates: start: 20030101
  2. ADVIL [Concomitant]
  3. GLYBURIDE [Concomitant]
  4. AVANDIA [Concomitant]
  5. LEVOXYL [Concomitant]
  6. WELCHOL [Concomitant]
  7. ZELNORM [Concomitant]
  8. ASACOL [Concomitant]
  9. CORTICOL (ALL OTHER THERAPEUTIC PRODUCTS) [Concomitant]

REACTIONS (3)
  - ABDOMINAL DISTENSION [None]
  - FLUID RETENTION [None]
  - HEPATIC CIRRHOSIS [None]
